FAERS Safety Report 7135298-2 (Version None)
Quarter: 2010Q4

REPORT INFORMATION
  Report Type: 
  Country: None (occurrence: None)
  Receive Date: 20101203
  Receipt Date: 20101124
  Transmission Date: 20110411
  Serious: Yes (Hospitalization)
  Sender: FDA-Public Use
  Company Number: B0661242A

PATIENT
  Age: 10 Year
  Sex: Female

DRUGS (4)
  1. VALACICLOVIR [Suspect]
     Indication: STOMATITIS
     Route: 048
  2. ACICLOVIR [Suspect]
     Indication: ENCEPHALITIS HERPES
     Route: 048
  3. MANNITOL [Concomitant]
     Route: 065
  4. STEROID [Concomitant]
     Route: 065

REACTIONS (27)
  - ALANINE AMINOTRANSFERASE [None]
  - ALANINE AMINOTRANSFERASE INCREASED [None]
  - ALTERED STATE OF CONSCIOUSNESS [None]
  - APHTHOUS STOMATITIS [None]
  - ASPARTATE AMINOTRANSFERASE INCREASED [None]
  - BLOOD PRESSURE DIASTOLIC DECREASED [None]
  - C-REACTIVE PROTEIN [None]
  - CENTRAL NERVOUS SYSTEM LESION [None]
  - COGNITIVE DISORDER [None]
  - DRUG HYPERSENSITIVITY [None]
  - ENCEPHALITIS [None]
  - FEELING ABNORMAL [None]
  - HEADACHE [None]
  - HEPATOSPLENOMEGALY [None]
  - HISTIOCYTOSIS HAEMATOPHAGIC [None]
  - HYPONATRAEMIA [None]
  - INCOHERENT [None]
  - INFLAMMATION [None]
  - LIVEDO RETICULARIS [None]
  - PLATELET COUNT DECREASED [None]
  - PROTHROMBIN TIME ABNORMAL [None]
  - PROTHROMBIN TIME PROLONGED [None]
  - PYREXIA [None]
  - RASH [None]
  - RESPIRATORY RATE INCREASED [None]
  - SPLENIC LESION [None]
  - TREATMENT NONCOMPLIANCE [None]
